FAERS Safety Report 12248185 (Version 7)
Quarter: 2017Q1

REPORT INFORMATION
  Report Type: Report from Study
  Country: FR (occurrence: FR)
  Receive Date: 20160408
  Receipt Date: 20170124
  Transmission Date: 20170428
  Serious: Yes (Other)
  Sender: FDA-Public Use
  Company Number: FR-ROCHE-1736452

PATIENT
  Age: 37 Year
  Sex: Female
  Weight: 62 kg

DRUGS (26)
  1. TRASTUZUMAB [Suspect]
     Active Substance: TRASTUZUMAB
     Dosage: MAINTANENCE DOSE, MOST RECENT DOSE - 15/FEB/2016, ONCE
     Route: 042
  2. EPIRUBICIN [Suspect]
     Active Substance: EPIRUBICIN
     Indication: HER-2 POSITIVE BREAST CANCER
     Route: 065
     Dates: start: 20150430
  3. DONORMYL [Concomitant]
     Active Substance: DOXYLAMINE SUCCINATE
     Indication: DEPRESSION
     Route: 065
     Dates: start: 20150717
  4. HEC (FRANCE) [Concomitant]
     Route: 065
     Dates: start: 20150717
  5. PERTUZUMAB [Suspect]
     Active Substance: PERTUZUMAB
     Dosage: MAINTANENCE DOSE, MOST RECENT DOSE PRIOR TO SAE- 15/FEB/2016, ONCE
     Route: 042
  6. ECONAZOLE [Concomitant]
     Active Substance: ECONAZOLE
     Indication: VULVOVAGINAL MYCOTIC INFECTION
     Route: 065
     Dates: start: 20151003
  7. EMEND [Concomitant]
     Active Substance: APREPITANT
     Indication: NAUSEA
     Route: 065
     Dates: start: 20150430
  8. ARESTAL [Concomitant]
     Active Substance: LOPERAMIDE OXIDE
     Indication: DIARRHOEA
     Route: 065
     Dates: start: 20150814
  9. ATARAX [Concomitant]
     Active Substance: HYDROXYZINE HYDROCHLORIDE
     Indication: DERMATITIS ACNEIFORM
     Route: 065
     Dates: start: 20151207, end: 20160214
  10. ENERGIE CAPS (UNK INGREDIENTS) [Concomitant]
     Indication: ASTHENIA
     Route: 065
     Dates: start: 20150502
  11. 5-FLUOROURACIL [Suspect]
     Active Substance: FLUOROURACIL
     Indication: HER-2 POSITIVE BREAST CANCER
     Route: 065
     Dates: start: 20150430
  12. XANAX [Concomitant]
     Active Substance: ALPRAZOLAM
     Indication: DEPRESSION
     Route: 065
     Dates: start: 20150502
  13. INEXIUM [Concomitant]
     Active Substance: ESOMEPRAZOLE
     Indication: GASTROOESOPHAGEAL REFLUX DISEASE
     Route: 065
     Dates: start: 20150717
  14. LORAMYC [Concomitant]
     Active Substance: MICONAZOLE
     Indication: FUNGAL INFECTION
     Route: 065
     Dates: start: 20150824
  15. DOXYCYCLINE. [Concomitant]
     Active Substance: DOXYCYCLINE
     Indication: DERMATITIS ACNEIFORM
     Route: 065
     Dates: start: 20150928
  16. PERTUZUMAB [Suspect]
     Active Substance: PERTUZUMAB
     Indication: HER-2 POSITIVE BREAST CANCER
     Dosage: LOADING DOSE
     Route: 042
     Dates: start: 20150703
  17. TRASTUZUMAB [Suspect]
     Active Substance: TRASTUZUMAB
     Indication: HER-2 POSITIVE BREAST CANCER
     Dosage: LOADING DOSE,
     Route: 042
     Dates: start: 20150703
  18. CYCLOPHOSPHAMIDE. [Suspect]
     Active Substance: CYCLOPHOSPHAMIDE
     Indication: HER-2 POSITIVE BREAST CANCER
     Route: 065
     Dates: start: 20150430
  19. DOLIPRANE [Concomitant]
     Active Substance: ACETAMINOPHEN
     Indication: HEADACHE
     Route: 065
     Dates: start: 20150504
  20. ERYTHROMYCINE [Concomitant]
     Active Substance: ERYTHROMYCIN
  21. AERIUS [Concomitant]
     Active Substance: DESLORATADINE
     Indication: DERMATITIS ACNEIFORM
     Route: 065
     Dates: start: 20160215
  22. SOLUPRED (FRANCE) [Concomitant]
     Active Substance: PREDNISOLONE
     Indication: NAUSEA
     Route: 065
     Dates: start: 20150430
  23. EMLA [Concomitant]
     Active Substance: LIDOCAINE\PRILOCAINE
     Indication: PAIN
     Route: 065
     Dates: start: 20150703
  24. BLOXAPHTE [Concomitant]
     Indication: APHTHOUS ULCER
     Route: 065
     Dates: start: 20150703
  25. GAVISCON (ALGINIC ACID) [Concomitant]
     Indication: GASTROOESOPHAGEAL REFLUX DISEASE
     Route: 065
     Dates: start: 20150703
  26. AERIUS [Concomitant]
     Active Substance: DESLORATADINE
     Indication: DERMATITIS ACNEIFORM
     Route: 065
     Dates: start: 20160215

REACTIONS (1)
  - Electrocardiogram repolarisation abnormality [Recovered/Resolved]

NARRATIVE: CASE EVENT DATE: 20160305
